FAERS Safety Report 9069808 (Version 1)
Quarter: 2013Q1

REPORT INFORMATION
  Report Type: Report from Study
  Country: US (occurrence: US)
  Receive Date: 20130131
  Receipt Date: 20130131
  Transmission Date: 20140127
  Serious: No
  Sender: FDA-Public Use
  Company Number: US-ABBOTT-12P-163-1005533-00

PATIENT
  Age: 67 Year
  Sex: Male

DRUGS (3)
  1. HUMIRA [Suspect]
     Indication: RHEUMATOID ARTHRITIS
     Dates: start: 2010
  2. UNKNOWN DIURETIC [Concomitant]
     Indication: HYPERTENSION
     Dosage: DAILY
  3. UNKNOWN STATIN [Concomitant]
     Indication: BLOOD CHOLESTEROL INCREASED
     Dosage: DAILY

REACTIONS (3)
  - Incorrect dose administered [Unknown]
  - Injection site mass [Recovering/Resolving]
  - Device malfunction [Unknown]
